FAERS Safety Report 9833237 (Version 3)
Quarter: 2014Q1

REPORT INFORMATION
  Report Type: Report from Study
  Country: US (occurrence: US)
  Receive Date: 20140121
  Receipt Date: 20140224
  Transmission Date: 20141002
  Serious: Yes (Hospitalization)
  Sender: FDA-Public Use
  Company Number: US-ACTELION-A-US2014-93669

PATIENT
  Age: 58 Year
  Sex: Female

DRUGS (16)
  1. TRACLEER [Suspect]
     Indication: PULMONARY ARTERIAL HYPERTENSION
     Dosage: 125 MG, TID
     Route: 048
  2. SILDENAFIL [Concomitant]
     Dosage: 20 MG, TID
  3. AMLODIPINE [Concomitant]
     Dosage: 5 MG, QD
  4. CELEBREX [Concomitant]
     Dosage: 200 MG, QD
  5. VITAMIN D [Concomitant]
     Dosage: 5000 U, QD
  6. DEXLANSOPRAZOLE [Concomitant]
     Dosage: 60 MG, QD
  7. LOMOTIL [Concomitant]
     Dosage: UNK, PRN
  8. LEXAPRO [Concomitant]
     Dosage: 20 MG, QD
     Route: 048
  9. ZOFRAN [Concomitant]
  10. LYRICA [Concomitant]
     Dosage: 300 MG, BID
     Route: 048
  11. PROGESTERONE [Concomitant]
     Dosage: 100 MG, QD
  12. SPIRONOLACTONE [Concomitant]
     Dosage: 35 MG, QD
     Route: 048
  13. AMBIEN [Concomitant]
     Dosage: 5 MG, UNK
     Route: 048
  14. OMNICEF [Concomitant]
     Dosage: 300 MG, BID X SIX DAYS
  15. DIFLUCAN [Concomitant]
     Dosage: 150 MG, PRN
  16. CHOLESTYRAMINE [Concomitant]
     Dosage: 4 G, BID

REACTIONS (14)
  - Hepatic steatosis [Recovered/Resolved]
  - Colitis [Recovered/Resolved]
  - Diarrhoea haemorrhagic [Recovered/Resolved]
  - Abdominal pain [Recovered/Resolved]
  - Nausea [Recovered/Resolved]
  - Vomiting [Recovered/Resolved]
  - Urinary tract infection [Recovered/Resolved]
  - Dehydration [Recovered/Resolved]
  - Hypokalaemia [Recovered/Resolved]
  - Metabolic acidosis [Recovered/Resolved]
  - Neuropathy peripheral [Unknown]
  - Pleural effusion [Recovered/Resolved]
  - Hypoglycaemia [Recovered/Resolved]
  - Gastric polyps [Recovered/Resolved]
